FAERS Safety Report 23538725 (Version 1)
Quarter: 2024Q1

REPORT INFORMATION
  Report Type: Other
  Country: IT (occurrence: None)
  Receive Date: 20240219
  Receipt Date: 20240219
  Transmission Date: 20240409
  Serious: Yes (Hospitalization)
  Sender: FDA-Public Use
  Company Number: IT-ROCHE-3509562

PATIENT
  Age: 58 Year
  Sex: Female
  Weight: 110 kg

DRUGS (16)
  1. PERJETA [Suspect]
     Active Substance: PERTUZUMAB
     Indication: HER2 positive breast cancer
     Dosage: MOST RECENT DOSE PRIOR TO THE EVENT: 3/AUG/2018
     Route: 042
     Dates: start: 20170713, end: 20170713
  2. HERCEPTIN [Suspect]
     Active Substance: TRASTUZUMAB
     Indication: HER2 positive breast cancer
     Dosage: MOST RECENT DOSE PRIOR TO THE EVENT: 14/JUL/2017
     Route: 042
     Dates: start: 20170713, end: 20200123
  3. TAXOTERE [Suspect]
     Active Substance: DOCETAXEL
     Indication: HER2 positive breast cancer
     Route: 042
     Dates: start: 20170714, end: 20171005
  4. FEMARA [Suspect]
     Active Substance: LETROZOLE
     Indication: HER2 positive breast cancer
     Route: 048
     Dates: start: 20190415
  5. KADCYLA [Suspect]
     Active Substance: ADO-TRASTUZUMAB EMTANSINE
     Indication: HER2 positive breast cancer
     Route: 042
     Dates: start: 20200218, end: 20230418
  6. OSELTAMIVIR [Concomitant]
     Active Substance: OSELTAMIVIR
     Indication: Interstitial lung disease
     Dosage: ONGOING = NOT CHECKED
     Dates: end: 20240115
  7. PIPERACILLIN SODIUM [Concomitant]
     Active Substance: PIPERACILLIN SODIUM
     Indication: Interstitial lung disease
     Dosage: ONGOING = NOT CHECKED
     Dates: end: 20240115
  8. TAZOBACTAM [Concomitant]
     Active Substance: TAZOBACTAM
     Indication: Interstitial lung disease
     Dosage: ONGOING = NOT CHECKED
     Dates: end: 20240115
  9. VANCOMYCIN [Concomitant]
     Active Substance: VANCOMYCIN
     Indication: Interstitial lung disease
     Dosage: ONGOING = NOT CHECKED
     Dates: end: 20240115
  10. RAMIPRIL [Concomitant]
     Active Substance: RAMIPRIL
     Dosage: ONGOING = CHECKED
     Dates: start: 20200219
  11. XGEVA [Concomitant]
     Active Substance: DENOSUMAB
     Dosage: ONGOING = CHECKED
     Dates: start: 20200317
  12. PANTOPRAZOLE SODIUM [Concomitant]
     Active Substance: PANTOPRAZOLE SODIUM
     Dosage: ONGOING = CHECKED
     Dates: start: 20210914
  13. IBUPROFEN [Concomitant]
     Active Substance: IBUPROFEN
     Dosage: ONGOING = CHECKED
     Dates: start: 20220614
  14. CHOLECALCIFEROL [Concomitant]
     Active Substance: CHOLECALCIFEROL
     Dosage: ONGOING = CHECKED
     Dates: start: 20230228
  15. DOBETIN [Concomitant]
     Dosage: ONGOING = CHECKED
     Dates: start: 20230228
  16. ERYTHROPOIETIN [Concomitant]
     Active Substance: ERYTHROPOIETIN
     Dosage: ONGOING = CHECKED
     Dates: start: 20230605

REACTIONS (1)
  - Cholecystitis acute [Not Recovered/Not Resolved]

NARRATIVE: CASE EVENT DATE: 20231228
